FAERS Safety Report 17096568 (Version 1)
Quarter: 2019Q4

REPORT INFORMATION
  Report Type: Spontaneous
  Country: GB (occurrence: GB)
  Receive Date: 20191202
  Receipt Date: 20191202
  Transmission Date: 20200122
  Serious: Yes (Other)
  Sender: FDA-Public Use
  Company Number: GB-TEVA-2019-GB-1144010

PATIENT
  Age: 48 Year
  Sex: Female

DRUGS (4)
  1. ACETAZOLAMIDE. [Concomitant]
     Active Substance: ACETAZOLAMIDE
  2. TEVA UK LIOTHYRONINE [Suspect]
     Active Substance: LIOTHYRONINE
     Indication: AUTOIMMUNE THYROIDITIS
     Dosage: 10 MICROGRAM PER DAY
     Route: 048
     Dates: start: 20190826, end: 20191014
  3. SANDO-K [Concomitant]
  4. LEVOTHYROXINE. [Concomitant]
     Active Substance: LEVOTHYROXINE

REACTIONS (7)
  - Headache [Recovered/Resolved]
  - Fatigue [Recovered/Resolved]
  - Abdominal distension [Recovered/Resolved]
  - Pain [Recovered/Resolved]
  - Chills [Recovered/Resolved]
  - Abdominal pain upper [Recovered/Resolved]
  - Nausea [Recovered/Resolved]

NARRATIVE: CASE EVENT DATE: 20190828
